FAERS Safety Report 18519032 (Version 5)
Quarter: 2021Q3

REPORT INFORMATION
  Report Type: Report from Study
  Country: BR (occurrence: BR)
  Receive Date: 20201118
  Receipt Date: 20210906
  Transmission Date: 20211014
  Serious: Yes (Other)
  Sender: FDA-Public Use
  Company Number: BR-TAKEDA-BR202016376

PATIENT
  Age: 1 Year
  Sex: Male
  Weight: 15 kg

DRUGS (17)
  1. HEMO?8R [Suspect]
     Active Substance: ANTIHEMOPHILIC FACTOR, HUMAN RECOMBINANT
     Dosage: 250 INTERNATIONAL UNIT, Q2WEEKS
     Route: 042
     Dates: start: 20200604
  2. FEIBA NF [Suspect]
     Active Substance: ANTI-INHIBITOR COAGULANT COMPLEX
     Dosage: 1500 INTERNATIONAL UNIT, 3/WEEK
     Route: 065
     Dates: start: 202102
  3. CAPTOPRIL. [Concomitant]
     Active Substance: CAPTOPRIL
     Indication: CONGENITAL CARDIOVASCULAR ANOMALY
     Dosage: 3 MILLILITER, TID
     Route: 048
     Dates: start: 202001
  4. FUROSEMIDE. [Concomitant]
     Active Substance: FUROSEMIDE
     Indication: POLLAKIURIA
     Dosage: 1.5 MILLILITER, QD
     Route: 048
     Dates: start: 20201017
  5. HEMO?8R [Suspect]
     Active Substance: ANTIHEMOPHILIC FACTOR, HUMAN RECOMBINANT
     Dosage: 250 INTERNATIONAL UNIT, Q2WEEKS
     Route: 042
     Dates: start: 20200512
  6. COAGULATION FACTOR VIIA (RECOMBINANT) [Suspect]
     Active Substance: COAGULATION FACTOR VIIA RECOMBINANT HUMAN
     Indication: FACTOR VIII DEFICIENCY
     Dosage: UNK
     Route: 065
     Dates: start: 202009, end: 202102
  7. METOPROLOL. [Concomitant]
     Active Substance: METOPROLOL
     Dosage: 0.5 UNK, BID
     Route: 065
  8. HEMO?8R [Suspect]
     Active Substance: ANTIHEMOPHILIC FACTOR, HUMAN RECOMBINANT
     Dosage: 500 INTERNATIONAL UNIT, Q3WEEKS
     Route: 042
     Dates: start: 20200512
  9. HEMO?8R [Suspect]
     Active Substance: ANTIHEMOPHILIC FACTOR, HUMAN RECOMBINANT
     Dosage: 250 INTERNATIONAL UNIT, Q3WEEKS
     Route: 042
     Dates: start: 20200907
  10. METOPROLOL. [Concomitant]
     Active Substance: METOPROLOL
     Indication: CONGENITAL CARDIOVASCULAR ANOMALY
     Dosage: 0.5 MILLIGRAM, BID
     Route: 065
     Dates: start: 202101
  11. FEIBA NF [Suspect]
     Active Substance: ANTI-INHIBITOR COAGULANT COMPLEX
     Indication: FACTOR VIII DEFICIENCY
     Dosage: 1500 INTERNATIONAL UNIT, 3/WEEK
     Route: 042
     Dates: start: 20210201
  12. FEIBA NF [Suspect]
     Active Substance: ANTI-INHIBITOR COAGULANT COMPLEX
     Dosage: 1500 INTERNATIONAL UNIT, 3/WEEK
     Route: 042
     Dates: start: 20210211
  13. FEIBA NF [Suspect]
     Active Substance: ANTI-INHIBITOR COAGULANT COMPLEX
     Dosage: UNK, IF THERE IS ANY COMPLICATION
     Route: 065
  14. HEMO?8R [Suspect]
     Active Substance: ANTIHEMOPHILIC FACTOR, HUMAN RECOMBINANT
     Indication: FACTOR VIII DEFICIENCY
     Dosage: 250 INTERNATIONAL UNIT, Q2WEEKS
     Route: 042
     Dates: start: 20200211
  15. COAGULATION FACTOR VIIA (RECOMBINANT) [Suspect]
     Active Substance: COAGULATION FACTOR VIIA RECOMBINANT HUMAN
     Dosage: 2 INTERNATIONAL UNIT, 3/WEEK
     Route: 065
  16. HEMO?8R [Suspect]
     Active Substance: ANTIHEMOPHILIC FACTOR, HUMAN RECOMBINANT
     Dosage: UNK
     Route: 042
     Dates: end: 202105
  17. HEMO?8R [Suspect]
     Active Substance: ANTIHEMOPHILIC FACTOR, HUMAN RECOMBINANT
     Dosage: 750 INTERNATIONAL UNIT, 3/WEEK
     Route: 042
     Dates: start: 20210811

REACTIONS (13)
  - Haematoma [Not Recovered/Not Resolved]
  - Anti factor VIII antibody increased [Recovering/Resolving]
  - Contusion [Recovering/Resolving]
  - Skin disorder [Not Recovered/Not Resolved]
  - Anti factor VIII antibody positive [Recovering/Resolving]
  - Off label use [Unknown]
  - Unevaluable event [Recovering/Resolving]
  - Weight increased [Recovered/Resolved]
  - Gait disturbance [Recovering/Resolving]
  - Injection site swelling [Recovered/Resolved]
  - Inhibitory drug interaction [Unknown]
  - Haemarthrosis [Not Recovered/Not Resolved]
  - Extra dose administered [Recovered/Resolved]

NARRATIVE: CASE EVENT DATE: 20200211
